FAERS Safety Report 13383221 (Version 1)
Quarter: 2017Q1

REPORT INFORMATION
  Report Type: Spontaneous
  Country: FR (occurrence: FR)
  Receive Date: 20170329
  Receipt Date: 20170329
  Transmission Date: 20170429
  Serious: Yes (Life-Threatening)
  Sender: FDA-Public Use
  Company Number: FR-PFIZER INC-2017129660

PATIENT
  Age: 51 Year
  Sex: Male

DRUGS (1)
  1. OXALIPLATIN HOSPIRA [Suspect]
     Active Substance: OXALIPLATIN
     Indication: LARYNGEAL NEOPLASM
     Dosage: UNK
     Route: 042
     Dates: start: 20170306, end: 20170306

REACTIONS (5)
  - Presyncope [Recovered/Resolved]
  - Laryngospasm [Recovered/Resolved]
  - Dyspnoea [Recovered/Resolved]
  - Malaise [Recovered/Resolved]
  - Product use issue [Unknown]

NARRATIVE: CASE EVENT DATE: 20170306
